FAERS Safety Report 4963037-X (Version None)
Quarter: 2006Q2

REPORT INFORMATION
  Report Type: 
  Country: None (occurrence: None)
  Receive Date: 20060405
  Receipt Date: 20060331
  Transmission Date: 20061013
  Serious: Yes (Other)
  Sender: FDA-Public Use
  Company Number: US-JNJFOC-20060400315

PATIENT
  Sex: Female
  Weight: 50.8 kg

DRUGS (1)
  1. ORTHO EVRA [Suspect]
     Indication: CONTRACEPTION
     Dates: start: 20060201

REACTIONS (3)
  - CONVULSION [None]
  - DYSMENORRHOEA [None]
  - MOOD ALTERED [None]
